FAERS Safety Report 23398518 (Version 1)
Quarter: 2024Q1

REPORT INFORMATION
  Report Type: Spontaneous
  Country: FR (occurrence: FR)
  Receive Date: 20240112
  Receipt Date: 20240112
  Transmission Date: 20240410
  Serious: Yes (Hospitalization)
  Sender: FDA-Public Use
  Company Number: None

PATIENT
  Age: 37 Year
  Sex: Male

DRUGS (2)
  1. LETERMOVIR [Suspect]
     Active Substance: LETERMOVIR
     Indication: Liver transplant
     Dosage: UNK
     Route: 042
     Dates: start: 20231213
  2. PIPERACILLIN SODIUM\TAZOBACTAM SODIUM [Suspect]
     Active Substance: PIPERACILLIN SODIUM\TAZOBACTAM SODIUM
     Indication: Infection
     Dosage: UNK
     Route: 042
     Dates: start: 20231125

REACTIONS (1)
  - Hypercreatinaemia [Not Recovered/Not Resolved]

NARRATIVE: CASE EVENT DATE: 20231213
